FAERS Safety Report 9989455 (Version 1)
Quarter: 2014Q1

REPORT INFORMATION
  Report Type: Spontaneous
  Country: US (occurrence: None)
  Receive Date: 20140123
  Receipt Date: 20140123
  Transmission Date: 20141002
  Serious: Yes (Hospitalization)
  Sender: FDA-Public Use
  Company Number: UTC-039683

PATIENT
  Age: 47 Year
  Sex: Female
  Weight: 117.7 kg

DRUGS (1)
  1. REMODULIN [Suspect]
     Indication: COR PULMONALE CHRONIC
     Dosage: 23.04 UG/KG (0.016 UG/KG, 1 IN 1 MIN, INTRAVENOUS DRIP  10/16/2013 THERAPY DATES ONGOING
     Dates: start: 20131116

REACTIONS (2)
  - Nausea [None]
  - Headache [None]
